FAERS Safety Report 25208172 (Version 2)
Quarter: 2025Q4

REPORT INFORMATION
  Report Type: Spontaneous
  Country: US (occurrence: US)
  Receive Date: 20250417
  Receipt Date: 20251110
  Transmission Date: 20260118
  Serious: Yes (Hospitalization, Other)
  Sender: BLUEPRINT MEDICINES
  Company Number: US-Blueprint Medicines Corporation-2025-AER-00711

PATIENT
  Age: 53 Year
  Sex: Female

DRUGS (5)
  1. AYVAKIT [Suspect]
     Active Substance: AVAPRITINIB
     Indication: Advanced systemic mastocytosis
     Route: 065
  2. AYVAKIT [Suspect]
     Active Substance: AVAPRITINIB
     Indication: Breast cancer female
     Route: 065
     Dates: start: 20250130
  3. AYVAKIT [Suspect]
     Active Substance: AVAPRITINIB
     Route: 065
     Dates: start: 20231010
  4. VERZENIO [Suspect]
     Active Substance: ABEMACICLIB
     Indication: Product used for unknown indication
     Route: 065
  5. VOQUEZNA [Suspect]
     Active Substance: VONOPRAZAN FUMARATE
     Indication: Product used for unknown indication
     Route: 065

REACTIONS (22)
  - Breast cancer [Unknown]
  - Paraesthesia [Unknown]
  - Condition aggravated [Unknown]
  - Vomiting [Recovering/Resolving]
  - Diarrhoea [Unknown]
  - Blood potassium decreased [Unknown]
  - Insomnia [Unknown]
  - Pruritus [Unknown]
  - Large intestine polyp [Unknown]
  - Throat lesion [Unknown]
  - Dysphagia [Unknown]
  - Pharyngeal swelling [Unknown]
  - Electrolyte depletion [Not Recovered/Not Resolved]
  - Malaise [Unknown]
  - Rash [Unknown]
  - Dizziness [Unknown]
  - Fall [Unknown]
  - Throat tightness [Unknown]
  - Balance disorder [Unknown]
  - Memory impairment [Unknown]
  - Drug ineffective [Unknown]
  - Product dose omission issue [Unknown]

NARRATIVE: CASE EVENT DATE: 20250305
